FAERS Safety Report 20825394 (Version 2)
Quarter: 2023Q1

REPORT INFORMATION
  Report Type: Other
  Country: US (occurrence: None)
  Receive Date: 20220513
  Receipt Date: 20230112
  Transmission Date: 20230418
  Serious: Yes (Other)
  Sender: FDA-Public Use
  Company Number: US-ROCHE-2702591

PATIENT
  Sex: Male

DRUGS (1)
  1. CELLCEPT [Suspect]
     Active Substance: MYCOPHENOLATE MOFETIL
     Indication: Liver transplant
     Dosage: TAKE 1 TABLET TWICE DAILY
     Route: 048

REACTIONS (5)
  - Cardiac disorder [Unknown]
  - Heart rate increased [Unknown]
  - Intentional product misuse [Unknown]
  - Off label use [Unknown]
  - Confusional state [Unknown]
